FAERS Safety Report 6506335-0 (Version None)
Quarter: 2009Q4

REPORT INFORMATION
  Report Type: 
  Country: None (occurrence: None)
  Receive Date: 20091218
  Receipt Date: 20091209
  Transmission Date: 20100525
  Serious: Yes (Hospitalization)
  Sender: FDA-Public Use
  Company Number: AR-AMGEN-US381179

PATIENT
  Sex: Female
  Weight: 83 kg

DRUGS (5)
  1. ENBREL [Suspect]
     Indication: RHEUMATOID ARTHRITIS
     Route: 058
     Dates: start: 20060521
  2. CORTICOSTEROID NOS [Concomitant]
     Route: 065
  3. LOPERAMIDE [Concomitant]
     Indication: DIARRHOEA
     Route: 065
  4. CARTROL [Concomitant]
     Indication: GLAUCOMA
     Dosage: UNSPECIFIED, DROPS
     Route: 065
  5. T4 [Concomitant]
     Indication: THYROID THERAPY
     Route: 065

REACTIONS (2)
  - ARRHYTHMIA [None]
  - INJECTION SITE ABSCESS [None]
